FAERS Safety Report 10387430 (Version 1)
Quarter: 2014Q3

REPORT INFORMATION
  Report Type: Spontaneous
  Country: SG (occurrence: SG)
  Receive Date: 20140815
  Receipt Date: 20140815
  Transmission Date: 20150326
  Serious: Yes (Hospitalization, Other)
  Sender: FDA-Public Use
  Company Number: SG-009507513-1408SGP007149

PATIENT
  Age: 77 Year
  Sex: Female

DRUGS (1)
  1. ALENDRONATE SODIUM. [Suspect]
     Active Substance: ALENDRONATE SODIUM
     Indication: OSTEOPOROSIS
     Dosage: UNK
     Route: 048
     Dates: start: 2004, end: 2013

REACTIONS (4)
  - Bone graft [Recovered/Resolved]
  - Stress fracture [Recovered/Resolved]
  - Intramedullary rod insertion [Recovered/Resolved]
  - Ulna fracture [Recovered/Resolved]

NARRATIVE: CASE EVENT DATE: 2013
